FAERS Safety Report 11969999 (Version 1)
Quarter: 2016Q1

REPORT INFORMATION
  Report Type: Spontaneous
  Country: GR (occurrence: GR)
  Receive Date: 20160128
  Receipt Date: 20160128
  Transmission Date: 20160526
  Serious: Yes (Other)
  Sender: FDA-Public Use
  Company Number: GR-SA-2015SA189494

PATIENT
  Sex: Male

DRUGS (1)
  1. RIFADIN [Suspect]
     Active Substance: RIFAMPIN
     Indication: MENINGITIS
     Route: 065
     Dates: start: 201511, end: 201511

REACTIONS (7)
  - Blood pressure increased [Unknown]
  - Psoriasis [Unknown]
  - Dysphagia [Recovering/Resolving]
  - Rash generalised [Recovering/Resolving]
  - Psoriatic arthropathy [Unknown]
  - Pharyngeal oedema [Recovering/Resolving]
  - Hypersensitivity [Recovering/Resolving]

NARRATIVE: CASE EVENT DATE: 201511
